FAERS Safety Report 4284514-3 (Version None)
Quarter: 2004Q1

REPORT INFORMATION
  Report Type: 
  Country: None (occurrence: None)
  Receive Date: 20040130
  Receipt Date: 20040113
  Transmission Date: 20041129
  Serious: Yes (Other)
  Sender: FDA-Public Use
  Company Number: USA040156499

PATIENT
  Age: 28 Year
  Sex: Female

DRUGS (7)
  1. XIGRIS [Suspect]
     Indication: SEPSIS
     Dates: start: 20031230
  2. UNASYN [Concomitant]
  3. METHYLPREDNISOLONE [Concomitant]
  4. FLUCONAZOLE [Concomitant]
  5. LACTULOSE [Concomitant]
  6. VANCOMYCIN [Concomitant]
  7. FENTANYL [Concomitant]

REACTIONS (1)
  - PANCREATITIS [None]
